FAERS Safety Report 10373942 (Version 1)
Quarter: 2014Q1

REPORT INFORMATION
  Report Type: Spontaneous
  Country: US (occurrence: None)
  Receive Date: 20140306
  Receipt Date: 20140306
  Transmission Date: 20141002
  Serious: Yes (Hospitalization)
  Sender: FDA-Public Use
  Company Number: 163-21880-13013957

PATIENT
  Age: 56 Year
  Sex: Female

DRUGS (10)
  1. REVLIMID (LENALIDOMIDE) (10 MILLIGRAM, CAPSULES) [Suspect]
     Indication: PLASMA CELL MYELOMA
     Dosage: 10 MG, 21 IN 21 D, PO
     Route: 048
     Dates: start: 201007
  2. LEVAQUIN (LEVOFLOXACIN) (TABLETS) [Concomitant]
  3. INDAPAMIDE (BI PREDONIUM) (TABLETS) [Concomitant]
  4. CALTRATE + D (LEKOVIT CA) (TABLETS) [Concomitant]
  5. CYMBALTA [Concomitant]
  6. HYDROCORTONE (HYDROCORTISONE) (TABLETS) [Concomitant]
  7. ALLEGRA (FEXOFENADINE HYDROCHLORIDE) (TABLETS) [Concomitant]
  8. ZYRTEC (CETIRIZINE HYDROCHLORIDE) (TABLETS) [Concomitant]
  9. PEPCID (FAMOTIDINE) (TABLETS) [Concomitant]
  10. AUGMENTIN [Concomitant]

REACTIONS (1)
  - Bronchitis [None]
